FAERS Safety Report 4660560-2 (Version None)
Quarter: 2005Q2

REPORT INFORMATION
  Report Type: 
  Country: None (occurrence: None)
  Receive Date: 20050512
  Receipt Date: 20050502
  Transmission Date: 20051028
  Serious: Yes (Hospitalization)
  Sender: FDA-Public Use
  Company Number: BR-ROCHE-403796

PATIENT
  Age: 52 Year
  Sex: Female
  Weight: 61 kg

DRUGS (2)
  1. RIVOTRIL [Suspect]
     Indication: ANXIETY
     Route: 048
     Dates: start: 20040915
  2. RIVOTRIL [Suspect]
     Route: 048

REACTIONS (8)
  - ABDOMINAL PAIN UPPER [None]
  - AMNESIA [None]
  - ARTHRALGIA [None]
  - CEREBROVASCULAR ACCIDENT [None]
  - DIZZINESS [None]
  - HEADACHE [None]
  - MALAISE [None]
  - SPEECH DISORDER [None]
